FAERS Safety Report 18396743 (Version 1)
Quarter: 2020Q4

REPORT INFORMATION
  Report Type: Spontaneous
  Country: US (occurrence: US)
  Receive Date: 20201019
  Receipt Date: 20201019
  Transmission Date: 20210114
  Serious: Yes (Hospitalization, Other)
  Sender: FDA-Public Use
  Company Number: US-SUN PHARMACEUTICAL INDUSTRIES LTD-2020R1-264304

PATIENT
  Age: 36 Year
  Sex: Female

DRUGS (1)
  1. LITHIUM. [Suspect]
     Active Substance: LITHIUM
     Indication: PRODUCT USED FOR UNKNOWN INDICATION
     Dosage: 300 MG MORNING, 600 MG EVENING
     Route: 048

REACTIONS (7)
  - Somnolence [Recovered/Resolved]
  - Encephalopathy [Unknown]
  - Dehydration [Unknown]
  - Gastrointestinal infection [Unknown]
  - Toxicity to various agents [Recovered/Resolved]
  - Antipsychotic drug level above therapeutic [Recovered/Resolved]
  - Fall [Recovered/Resolved]
